FAERS Safety Report 6308164-X (Version None)
Quarter: 2009Q3

REPORT INFORMATION
  Report Type: 
  Country: None (occurrence: None)
  Receive Date: 20090807
  Receipt Date: 20090729
  Transmission Date: 20100115
  Serious: Yes (Life-Threatening, Hospitalization, Other)
  Sender: FDA-Public Use
  Company Number: A-US2009-25992

PATIENT
  Age: 72 Year
  Sex: Male
  Weight: 68 kg

DRUGS (18)
  1. TRACLEER (BOSENTAN) TABLET 6205 MG [Suspect]
     Indication: PULMONARY HYPERTENSION
     Dosage: 62.5 MG, BID, ORAL
     Route: 048
     Dates: start: 20090525, end: 20090530
  2. COREG [Suspect]
     Dosage: 1.565, ORAL
     Route: 048
     Dates: start: 20090525, end: 20090530
  3. LASIX [Suspect]
     Dosage: MG, ORAL
     Route: 048
  4. OXYGEN (OXYGEN) [Concomitant]
  5. REVATIO [Concomitant]
  6. COUMADIN [Concomitant]
  7. ARAVA [Concomitant]
  8. PLAQUENIL [Concomitant]
  9. FOLATE (FOLIC ACID) [Concomitant]
  10. ZOCOR [Concomitant]
  11. CALCIUM (CALCIUM) [Concomitant]
  12. DUONEB (SALBUTAMOL SULFATE IPRATROPIUM BROMIDE) [Concomitant]
  13. DIGOXIN [Concomitant]
  14. NAPROSYN [Concomitant]
  15. PREDNISONE TAB [Concomitant]
  16. ADVAIR DISKUS 100/50 [Concomitant]
  17. ALDACTONE [Concomitant]
  18. ZAROXOLYN [Concomitant]

REACTIONS (11)
  - ASTHENIA [None]
  - BLOOD CREATININE INCREASED [None]
  - BLOOD UREA INCREASED [None]
  - CONFUSIONAL STATE [None]
  - DIZZINESS [None]
  - HYPOTENSION [None]
  - ISCHAEMIC CARDIOMYOPATHY [None]
  - NO THERAPEUTIC RESPONSE [None]
  - OFF LABEL USE [None]
  - PULMONARY HYPERTENSION [None]
  - RESPIRATORY FAILURE [None]
